FAERS Safety Report 17422998 (Version 1)
Quarter: 2020Q1

REPORT INFORMATION
  Report Type: Spontaneous
  Country: US (occurrence: US)
  Receive Date: 20200216
  Receipt Date: 20200216
  Transmission Date: 20200409
  Serious: No
  Sender: FDA-Public Use
  Company Number: US-009507513-2002USA003644

PATIENT
  Sex: Female

DRUGS (1)
  1. NUVARING [Suspect]
     Active Substance: ETHINYL ESTRADIOL\ETONOGESTREL
     Dosage: 1 RING/ ^USE FOR 3 WEEKS AND ONE WEEK RING-FREE^
     Route: 067
     Dates: start: 20200120

REACTIONS (4)
  - Poor quality device used [Unknown]
  - Product shape issue [Unknown]
  - Product dose omission [Unknown]
  - Device expulsion [Unknown]

NARRATIVE: CASE EVENT DATE: 20200120
